FAERS Safety Report 17150621 (Version 1)
Quarter: 2019Q4

REPORT INFORMATION
  Report Type: Spontaneous
  Country: US (occurrence: US)
  Receive Date: 20191213
  Receipt Date: 20191213
  Transmission Date: 20200122
  Serious: No
  Sender: FDA-Public Use
  Company Number: US-UCBSA-2015029669

PATIENT
  Sex: Female

DRUGS (1)
  1. VIMPAT [Suspect]
     Active Substance: LACOSAMIDE
     Indication: PRODUCT USED FOR UNKNOWN INDICATION
     Dosage: UNK

REACTIONS (13)
  - Depression [Unknown]
  - Weight increased [Unknown]
  - Blood glucose decreased [Unknown]
  - Drug ineffective [Unknown]
  - Mood swings [Unknown]
  - Headache [Unknown]
  - Memory impairment [Unknown]
  - Stress [Unknown]
  - Crying [Unknown]
  - Anger [Unknown]
  - Abnormal dreams [Unknown]
  - Skin disorder [Unknown]
  - Affect lability [Unknown]
